FAERS Safety Report 8942020 (Version 2)
Quarter: 2013Q1

REPORT INFORMATION
  Report Type: Spontaneous
  Country: US (occurrence: US)
  Receive Date: 20121203
  Receipt Date: 20130107
  Transmission Date: 20140127
  Serious: Yes (Death, Other)
  Sender: FDA-Public Use
  Company Number: US-PFIZER INC-2012300150

PATIENT
  Age: 86 Year
  Sex: Male

DRUGS (4)
  1. REVATIO [Suspect]
     Indication: COAGULOPATHY
     Dosage: 20 MG, 3X/DAY
     Route: 048
     Dates: start: 201104
  2. REVATIO [Suspect]
     Indication: PULMONARY HYPERTENSION
  3. PLAVIX [Concomitant]
     Dosage: UNK
  4. ACETYLSALICYLIC ACID [Concomitant]
     Dosage: UNK

REACTIONS (2)
  - Cardiac failure [Fatal]
  - Off label use [Unknown]
